FAERS Safety Report 4494276-2 (Version None)
Quarter: 2005Q1

REPORT INFORMATION
  Report Type: 
  Country: None (occurrence: None)
  Receive Date: 20041102
  Receipt Date: 20041015
  Transmission Date: 20050727
  Serious: Yes (Hospitalization)
  Sender: FDA-Public Use
  Company Number: US_0410106980

PATIENT
  Age: 1 Day
  Sex: Male

DRUGS (1)
  1. PROZAC [Suspect]

REACTIONS (17)
  - AGITATION NEONATAL [None]
  - APGAR SCORE LOW [None]
  - CONGENITAL HAND MALFORMATION [None]
  - CONVULSION NEONATAL [None]
  - DRUG EXPOSURE DURING PREGNANCY [None]
  - DRUG TOXICITY [None]
  - DYSKINESIA [None]
  - HYPERREFLEXIA [None]
  - HYPERTONIA [None]
  - JAUNDICE NEONATAL [None]
  - NEONATAL RESPIRATORY DISTRESS SYNDROME [None]
  - NEONATAL TACHYPNOEA [None]
  - PETECHIAE [None]
  - PREMATURE BABY [None]
  - RASH NEONATAL [None]
  - SEPSIS NEONATAL [None]
  - TREMOR NEONATAL [None]
